FAERS Safety Report 14125003 (Version 4)
Quarter: 2018Q1

REPORT INFORMATION
  Report Type: Report from Study
  Country: BE (occurrence: BE)
  Receive Date: 20171025
  Receipt Date: 20180206
  Transmission Date: 20180508
  Serious: Yes (Death, Hospitalization, Other)
  Sender: FDA-Public Use
  Company Number: BE-TAKEDA-2017TUS021975

PATIENT
  Age: 67 Year
  Sex: Male
  Weight: 80 kg

DRUGS (7)
  1. SANDIMMUNE [Concomitant]
     Active Substance: CYCLOSPORINE
     Dosage: UNK
  2. VEDOLIZUMAB [Suspect]
     Active Substance: VEDOLIZUMAB
     Indication: ACUTE GRAFT VERSUS HOST DISEASE
     Dosage: 300 MG, UNK
     Route: 042
     Dates: start: 20170301
  3. FOSCAVIR [Concomitant]
     Active Substance: FOSCARNET SODIUM
     Dosage: UNK
     Dates: start: 20170316
  4. CEFTAZIDIME. [Concomitant]
     Active Substance: CEFTAZIDIME
     Dosage: UNK
     Dates: start: 20170316
  5. FLAGYL [Concomitant]
     Active Substance: METRONIDAZOLE\METRONIDAZOLE HYDROCHLORIDE
     Dosage: UNK
     Dates: start: 20170320
  6. SOLU-MEDROL [Concomitant]
     Active Substance: METHYLPREDNISOLONE SODIUM SUCCINATE
     Dosage: UNK
  7. CYMEVENE                           /00784201/ [Concomitant]
     Active Substance: GANCICLOVIR
     Dosage: UNK
     Dates: start: 20170307

REACTIONS (4)
  - Cytomegalovirus colitis [Fatal]
  - Acute kidney injury [Fatal]
  - Graft versus host disease [Fatal]
  - Citrobacter sepsis [Fatal]

NARRATIVE: CASE EVENT DATE: 20170306
